FAERS Safety Report 6417775-2 (Version None)
Quarter: 2009Q4

REPORT INFORMATION
  Report Type: 
  Country: None (occurrence: None)
  Receive Date: 20091026
  Receipt Date: 20091013
  Transmission Date: 20100525
  Serious: Yes (Disabling)
  Sender: FDA-Public Use
  Company Number: ADR37772009

PATIENT
  Sex: Male

DRUGS (5)
  1. SIMVASTATIN [Suspect]
     Indication: BLOOD CHOLESTEROL INCREASED
     Dosage: 40 MG, 1/1 DAYS ORAL
     Route: 048
     Dates: start: 20070831, end: 20080101
  2. EZETIMIBE [Concomitant]
  3. METFORMIN HCL [Concomitant]
  4. NOVOMIX [Concomitant]
  5. UNSPECIFIED DRUG [Concomitant]

REACTIONS (5)
  - ARTHRITIS [None]
  - BLOOD GLUCOSE INCREASED [None]
  - MYOSITIS [None]
  - NECK PAIN [None]
  - PAIN IN EXTREMITY [None]
